FAERS Safety Report 6839679-3 (Version None)
Quarter: 2010Q3

REPORT INFORMATION
  Report Type: 
  Country: None (occurrence: None)
  Receive Date: 20100714
  Receipt Date: 20100707
  Transmission Date: 20110219
  Serious: Yes (Other)
  Sender: FDA-Public Use
  Company Number: US-BRISTOL-MYERS SQUIBB COMPANY-15167075

PATIENT
  Age: 38 Year
  Sex: Female
  Weight: 107 kg

DRUGS (14)
  1. REYATAZ [Suspect]
     Indication: HIV INFECTION
     Route: 048
  2. NORVIR [Suspect]
     Indication: HIV INFECTION
     Route: 048
  3. TRICOR [Concomitant]
  4. DULCOLAX [Concomitant]
  5. BUSPIRONE [Concomitant]
  6. TRUVADA [Concomitant]
     Route: 048
  7. WELLBUTRIN XL [Concomitant]
     Route: 048
  8. PRAVACHOL [Concomitant]
     Route: 048
  9. LYRICA [Concomitant]
  10. COLACE [Concomitant]
     Dosage: AT BED TIME
     Route: 048
  11. MIRALAX [Concomitant]
     Route: 048
  12. PROAIR HFA [Concomitant]
     Dosage: 2 DF = 2 PUFFS
  13. HUMULIN 70/30 [Concomitant]
     Dosage: 22 UNITS: AM 12 UNITS: PM
  14. TRAZODONE HCL [Concomitant]
     Dosage: QHS
     Route: 048

REACTIONS (8)
  - DIABETES MELLITUS [None]
  - DIZZINESS [None]
  - DYSPNOEA [None]
  - FACE OEDEMA [None]
  - INFLUENZA LIKE ILLNESS [None]
  - JAUNDICE [None]
  - PARAESTHESIA [None]
  - STOMATITIS [None]
